FAERS Safety Report 20038006 (Version 1)
Quarter: 2021Q4

REPORT INFORMATION
  Report Type: Spontaneous
  Country: None (occurrence: US)
  Receive Date: 20211105
  Receipt Date: 20211105
  Transmission Date: 20220303
  Serious: No
  Sender: FDA-Public Use
  Company Number: US-AKCEA THERAPEUTICS, INC.-2021IS001696

PATIENT
  Age: 66 Year
  Sex: Male

DRUGS (2)
  1. TEGSEDI [Suspect]
     Active Substance: INOTERSEN SODIUM
     Indication: Hereditary neuropathic amyloidosis
     Route: 058
  2. DEVICE [Suspect]
     Active Substance: DEVICE

REACTIONS (3)
  - Urine protein/creatinine ratio abnormal [Unknown]
  - Glucose urine present [Unknown]
  - Urinary occult blood positive [Unknown]

NARRATIVE: CASE EVENT DATE: 20210911
